FAERS Safety Report 14970205 (Version 3)
Quarter: 2018Q4

REPORT INFORMATION
  Report Type: Report from Study
  Country: FR (occurrence: FR)
  Receive Date: 20180604
  Receipt Date: 20181119
  Transmission Date: 20190204
  Serious: Yes (Death, Other)
  Sender: FDA-Public Use
  Company Number: FR-SEATTLE GENETICS-2018SGN00589

PATIENT
  Age: 73 Year
  Sex: Male
  Weight: 74 kg

DRUGS (2)
  1. BRENTUXIMAB VEDOTIN-MPI [Suspect]
     Active Substance: BRENTUXIMAB VEDOTIN
     Indication: ANGIOIMMUNOBLASTIC T-CELL LYMPHOMA
     Dosage: 133 MG, UNK
     Route: 042
     Dates: start: 20180223
  2. BENDAMUSTINE [Suspect]
     Active Substance: BENDAMUSTINE
     Indication: ANGIOIMMUNOBLASTIC T-CELL LYMPHOMA
     Dosage: 90 MG/M2, UNK
     Route: 042
     Dates: start: 20180224, end: 20180225

REACTIONS (6)
  - Febrile neutropenia [Fatal]
  - General physical health deterioration [Fatal]
  - Disease progression [Fatal]
  - Renal failure [Unknown]
  - Off label use [Unknown]
  - Hepatic failure [Unknown]

NARRATIVE: CASE EVENT DATE: 20180223
